FAERS Safety Report 15645622 (Version 2)
Quarter: 2019Q1

REPORT INFORMATION
  Report Type: Spontaneous
  Country: JP (occurrence: JP)
  Receive Date: 20181121
  Receipt Date: 20190226
  Transmission Date: 20190417
  Serious: No
  Sender: FDA-Public Use
  Company Number: JP-ALLERGAN-1854196US

PATIENT
  Sex: Female

DRUGS (1)
  1. URSODEOXYCHOLIC ACID - BP [Suspect]
     Active Substance: URSODIOL
     Indication: CHOLANGITIS
     Dosage: ACTUAL DOSE: THREE 100 MG TABLETS, TWICE DAILY (600 MG DAILY, OVERDOSE)
     Route: 048

REACTIONS (2)
  - Overdose [Unknown]
  - Product dose omission [Unknown]
